FAERS Safety Report 4345795-0 (Version None)
Quarter: 2004Q2

REPORT INFORMATION
  Report Type: 
  Country: None (occurrence: None)
  Receive Date: 20040421
  Receipt Date: 20040405
  Transmission Date: 20050107
  Serious: Yes (Disabling)
  Sender: FDA-Public Use
  Company Number: 2004-DE-01966GD

PATIENT
  Age: 37 Year
  Sex: Female

DRUGS (2)
  1. THIORIDAZINE [Suspect]
     Dosage: 900 MG TID
  2. CARBAMAZEPINE [Concomitant]

REACTIONS (10)
  - ACQUIRED NIGHT BLINDNESS [None]
  - COLOUR BLINDNESS [None]
  - EYE PAIN [None]
  - FACTITIOUS DISORDER [None]
  - MYDRIASIS [None]
  - PUPILLARY REFLEX IMPAIRED [None]
  - RETINAL DYSTROPHY [None]
  - RETINOPATHY [None]
  - VISUAL ACUITY REDUCED [None]
  - VITREOUS FLOATERS [None]
